FAERS Safety Report 8029298-8 (Version None)
Quarter: 2012Q1

REPORT INFORMATION
  Report Type: 
  Country: None (occurrence: None)
  Receive Date: 20120106
  Receipt Date: 20120104
  Transmission Date: 20120608
  Serious: No
  Sender: FDA-Public Use
  Company Number: US-BAYER-2012-001792

PATIENT
  Age: 60 Year
  Sex: Female

DRUGS (5)
  1. SIMVASTATIN [Concomitant]
  2. ADVAIR DISKUS 100/50 [Concomitant]
  3. ZYRTEC [Concomitant]
  4. ALEVE (CAPLET) [Suspect]
     Dosage: 2 TABLETS A DAY
     Route: 048
     Dates: start: 20120102, end: 20120103
  5. ALEVE (CAPLET) [Suspect]
     Indication: ANALGESIC THERAPY
     Dosage: 1 U, TID
     Route: 048
     Dates: start: 20111231, end: 20120101

REACTIONS (3)
  - URTICARIA [None]
  - RASH [None]
  - PRURITUS [None]
